FAERS Safety Report 6492358-7 (Version None)
Quarter: 2009Q4

REPORT INFORMATION
  Report Type: 
  Country: None (occurrence: None)
  Receive Date: 20091214
  Receipt Date: 20091204
  Transmission Date: 20100525
  Serious: Yes (Death, Hospitalization)
  Sender: FDA-Public Use
  Company Number: PT-ELI_LILLY_AND_COMPANY-PT200912001376

PATIENT
  Sex: Male
  Weight: 76.6 kg

DRUGS (7)
  1. PEMETREXED [Suspect]
     Indication: NON-SMALL CELL LUNG CANCER
     Dosage: 500 MG/M2, ON D1 EVERY 21 DAYS
     Route: 042
     Dates: start: 20091013
  2. CISPLATIN [Suspect]
     Indication: NON-SMALL CELL LUNG CANCER
     Dosage: 75 MG/M2, ON D1 EVERY 21 DAYS
     Route: 042
     Dates: start: 20091013
  3. FOLIC ACID [Concomitant]
     Indication: PROPHYLAXIS
  4. VIT B12 [Concomitant]
     Indication: NON-SMALL CELL LUNG CANCER
     Dates: start: 20090929, end: 20090929
  5. DEXAMETHASONE TAB [Concomitant]
     Indication: PROPHYLAXIS
     Dates: start: 20091118, end: 20091120
  6. METOCLOPRAMIDE [Concomitant]
     Indication: VOMITING
     Dates: start: 20091126, end: 20091127
  7. LOPERAMIDE [Concomitant]
     Indication: DIARRHOEA
     Dates: start: 20091126, end: 20091127

REACTIONS (1)
  - FEBRILE NEUTROPENIA [None]
